FAERS Safety Report 14759114 (Version 1)
Quarter: 2018Q2

REPORT INFORMATION
  Report Type: Spontaneous
  Country: SI (occurrence: SI)
  Receive Date: 20180413
  Receipt Date: 20180413
  Transmission Date: 20180711
  Serious: Yes (Other)
  Sender: FDA-Public Use
  Company Number: SI-TEVA-2018-SI-880181

PATIENT
  Age: 67 Year
  Sex: Female

DRUGS (10)
  1. EUTHYROX 75 MICROGRAM [Concomitant]
     Route: 065
  2. SPASMEX (TROSPIUM CHLORIDE) [Concomitant]
     Active Substance: TROSPIUM CHLORIDE
     Route: 065
  3. LOPACUT [Concomitant]
     Route: 065
  4. CIPRALEX [Concomitant]
     Active Substance: ESCITALOPRAM OXALATE
     Route: 065
  5. OKSALIPLATIN TEVA 5 MG/ML [Suspect]
     Active Substance: OXALIPLATIN
     Indication: PANCREATIC CARCINOMA
     Dosage: 5 MG/ML CONCENTRATE FOR SOLUTION FOR INFUSION
     Route: 042
     Dates: start: 20171024, end: 20180123
  6. METAMIZOL 500 MG [Concomitant]
     Active Substance: METAMIZOLE
     Route: 065
  7. VITAMIN [Concomitant]
     Active Substance: VITAMINS
     Route: 065
  8. LORSILAN 1 MG [Concomitant]
     Route: 065
  9. KREON 25.000 [Concomitant]
     Active Substance: PANCRELIPASE
     Route: 065
  10. REGLAN [Concomitant]
     Active Substance: METOCLOPRAMIDE HYDROCHLORIDE
     Route: 065

REACTIONS (2)
  - Off label use [Recovered/Resolved]
  - Infusion related reaction [Recovered/Resolved]

NARRATIVE: CASE EVENT DATE: 20180123
